FAERS Safety Report 4656005-9 (Version None)
Quarter: 2005Q2

REPORT INFORMATION
  Report Type: 
  Country: None (occurrence: None)
  Receive Date: 20050505
  Receipt Date: 20050505
  Transmission Date: 20051028
  Serious: Yes (Hospitalization)
  Sender: FDA-Public Use
  Company Number: None

PATIENT
  Age: 45 Year
  Sex: Female
  Weight: 68.9467 kg

DRUGS (5)
  1. LEVETIRACETAM [Suspect]
     Indication: PARTIAL SEIZURES
     Dosage: 1500MG  ONCE A DAY   ORAL
     Route: 048
     Dates: start: 20050422, end: 20050427
  2. TRAZODONE [Concomitant]
  3. PROZAC [Concomitant]
  4. VALPROIC ACID [Concomitant]
  5. PREDNISONE [Concomitant]

REACTIONS (3)
  - DEPRESSION [None]
  - FEAR [None]
  - SUICIDAL IDEATION [None]
